FAERS Safety Report 21143495 (Version 2)
Quarter: 2022Q3

REPORT INFORMATION
  Report Type: Spontaneous
  Country: NL (occurrence: NL)
  Receive Date: 20220728
  Receipt Date: 20220810
  Transmission Date: 20221027
  Serious: Yes (Death, Hospitalization)
  Sender: FDA-Public Use
  Company Number: NL-TEVA-2022-NL-2057689

PATIENT
  Age: 63 Year
  Sex: Male

DRUGS (6)
  1. PACLITAXEL [Interacting]
     Active Substance: PACLITAXEL
     Indication: Gastric cancer
     Dosage: DOSE ADMINISTERED ON DAYS 1,8 AND 15, IN A 28 DAY CYCLE
     Route: 065
  2. RITONAVIR [Interacting]
     Active Substance: RITONAVIR
     Indication: HIV infection
     Dosage: 100 MILLIGRAM DAILY;
     Route: 065
     Dates: start: 2019
  3. DARUNAVIR [Concomitant]
     Active Substance: DARUNAVIR
     Indication: HIV infection
     Dosage: 800 MILLIGRAM DAILY;
     Route: 065
     Dates: start: 2019
  4. LAMIVUDINE [Concomitant]
     Active Substance: LAMIVUDINE
     Indication: HIV infection
     Dosage: 150 MILLIGRAM DAILY;
     Route: 065
     Dates: start: 2019
  5. ABACAVIR [Concomitant]
     Active Substance: ABACAVIR
     Indication: HIV infection
     Dosage: 600 MILLIGRAM DAILY;
     Route: 065
     Dates: start: 2019
  6. CARBOPLATIN [Concomitant]
     Active Substance: CARBOPLATIN
     Indication: Gastric cancer
     Dosage: TARGET AUC=4 MG*MIN/M
     Route: 065

REACTIONS (3)
  - Neutropenic sepsis [Fatal]
  - Escherichia sepsis [Fatal]
  - Drug interaction [Fatal]
